FAERS Safety Report 9410141 (Version 4)
Quarter: 2013Q4

REPORT INFORMATION
  Report Type: Spontaneous
  Country: US (occurrence: US)
  Receive Date: 20130719
  Receipt Date: 20131226
  Transmission Date: 20140711
  Serious: Yes (Other)
  Sender: FDA-Public Use
  Company Number: US-AMGEN-USASP2013050118

PATIENT
  Age: 30 Year
  Sex: Male

DRUGS (1)
  1. EPOGEN [Suspect]
     Indication: RENAL FAILURE CHRONIC
     Dosage: UNK
     Route: 065
     Dates: start: 20110715

REACTIONS (3)
  - Transfusion [Not Recovered/Not Resolved]
  - Non-neutralising antibodies positive [Unknown]
  - Anti-erythropoietin antibody positive [Unknown]
